FAERS Safety Report 4284898-6 (Version None)
Quarter: 2004Q1

REPORT INFORMATION
  Report Type: 
  Country: None (occurrence: None)
  Receive Date: 20040203
  Receipt Date: 20040203
  Transmission Date: 20041129
  Serious: Yes (Hospitalization)
  Sender: FDA-Public Use
  Company Number: None

PATIENT
  Age: 68 Year
  Sex: Female

DRUGS (2)
  1. VORICONAZOLE 450MG [Suspect]
     Indication: ANTIFUNGAL PROPHYLAXIS
     Dosage: 450MG IV DAILY
     Route: 042
     Dates: start: 20040118, end: 20040119
  2. GLIPIZIDE [Suspect]
     Indication: DIABETES MELLITUS
     Dosage: 5MG PO DAILY
     Route: 048
     Dates: start: 20020101, end: 20040101

REACTIONS (1)
  - BLOOD GLUCOSE DECREASED [None]
